FAERS Safety Report 11124172 (Version 2)
Quarter: 2015Q2

REPORT INFORMATION
  Report Type: Spontaneous
  Country: US (occurrence: US)
  Receive Date: 20150520
  Receipt Date: 20150528
  Transmission Date: 20150821
  Serious: No
  Sender: FDA-Public Use
  Company Number: US-TEVA-562414ACC

PATIENT
  Age: 20 Year
  Sex: Female
  Weight: 50.85 kg

DRUGS (3)
  1. PLAN B ONE-STEP [Suspect]
     Active Substance: LEVONORGESTREL
     Indication: POST COITAL CONTRACEPTION
     Dosage: 1.5 MILLIGRAM DAILY;
     Route: 048
     Dates: start: 20150505, end: 20150505
  2. PENICILLIN [Concomitant]
     Active Substance: PENICILLIN
     Indication: PHARYNGITIS STREPTOCOCCAL
     Dosage: UNKNOWN FORM OF STRENGTH
     Route: 065
     Dates: start: 20150424, end: 20150505
  3. MICROGESTIN FE 1/20 [Suspect]
     Active Substance: ETHINYL ESTRADIOL\NORETHINDRONE ACETATE
     Indication: CONTRACEPTION
     Dosage: UNKNOWN FORM OF STRENGTH
     Route: 065
     Dates: end: 20150418

REACTIONS (3)
  - Nausea [Recovering/Resolving]
  - Abdominal pain upper [Recovering/Resolving]
  - Menstruation delayed [Recovered/Resolved]

NARRATIVE: CASE EVENT DATE: 20150505
